FAERS Safety Report 5499745-4 (Version None)
Quarter: 2007Q4

REPORT INFORMATION
  Report Type: 
  Country: None (occurrence: None)
  Receive Date: 20071026
  Receipt Date: 20071025
  Transmission Date: 20080405
  Serious: Yes (Death)
  Sender: FDA-Public Use
  Company Number: BW-BOEHRINGER INGELHEIM PHARMACEUTICALS, INC.-2007-BP-23330BP

PATIENT
  Sex: Male
  Weight: 3 kg

DRUGS (5)
  1. VIRAMUNE [Suspect]
     Indication: VERTICAL INFECTION TRANSMISSION
     Dates: start: 20070917
  2. LAMIVUDINE [Suspect]
     Indication: VERTICAL INFECTION TRANSMISSION
     Dates: start: 20070917
  3. STAVUDINE [Suspect]
     Indication: VERTICAL INFECTION TRANSMISSION
     Dates: start: 20070917
  4. COTRIMOXAZOLE [Concomitant]
  5. FERROUS SULFATE TAB [Concomitant]

REACTIONS (1)
  - DEATH [None]
